FAERS Safety Report 5118796-2 (Version None)
Quarter: 2006Q4

REPORT INFORMATION
  Report Type: 
  Country: None (occurrence: None)
  Receive Date: 20061002
  Receipt Date: 20060922
  Transmission Date: 20070319
  Serious: Yes (Death)
  Sender: FDA-Public Use
  Company Number: GB-ROCHE-465015

PATIENT
  Age: 66 Year
  Sex: Male

DRUGS (4)
  1. CAPECITABINE [Suspect]
     Route: 048
     Dates: start: 20060817, end: 20060820
  2. ASPIRIN [Concomitant]
     Route: 048
  3. LACTULOSE [Concomitant]
     Route: 048
     Dates: start: 20060401
  4. PRAVASTATIN [Concomitant]
     Route: 048
     Dates: start: 20010101

REACTIONS (3)
  - CHEST PAIN [None]
  - DISEASE PROGRESSION [None]
  - MYOCARDIAL ISCHAEMIA [None]
